FAERS Safety Report 7734270-9 (Version None)
Quarter: 2011Q3

REPORT INFORMATION
  Report Type: 
  Country: None (occurrence: None)
  Receive Date: 20110901
  Receipt Date: 20110817
  Transmission Date: 20111222
  Serious: Yes (Other)
  Sender: FDA-Public Use
  Company Number: US-1187236

PATIENT
  Age: 62 Year
  Sex: Male
  Weight: 105 kg

DRUGS (17)
  1. ACETAMINOPHEN [Concomitant]
  2. CARBOXYMETHYLCELLULOSE SODIUM [Concomitant]
  3. TEMAZEPAM [Concomitant]
  4. BSS [Suspect]
     Indication: CATARACT OPERATION
     Dosage: (500 ML INTRAOCULAR)
     Route: 031
     Dates: start: 20110713, end: 20110713
  5. METOPROLOL TARTRATE [Concomitant]
  6. CALCIUM CARBONATE [Concomitant]
  7. DOCUSATE SODIUM [Concomitant]
  8. FOLIC ACID [Concomitant]
  9. SPIRONOLACTONE [Concomitant]
  10. FUROSEMIDE [Concomitant]
  11. ROSUVASTATIN CALCIUM [Concomitant]
  12. AMIODARONE HYDROCHLORIDE [Concomitant]
  13. MOMETASONE FUROATE [Concomitant]
  14. EPINEHRINE [Concomitant]
  15. WARFARIN SODIUM [Concomitant]
  16. DICLOFENAC SODIUM [Concomitant]
  17. PREDNISOLONE ACETATE [Concomitant]

REACTIONS (1)
  - TOXIC ANTERIOR SEGMENT SYNDROME [None]
